FAERS Safety Report 12935704 (Version 1)
Quarter: 2016Q4

REPORT INFORMATION
  Report Type: Spontaneous
  Country: FR (occurrence: FR)
  Receive Date: 20161114
  Receipt Date: 20161114
  Transmission Date: 20170207
  Serious: Yes (Disabling)
  Sender: FDA-Public Use
  Company Number: FR-ROCHE-1853227

PATIENT
  Age: 55 Year
  Sex: Female

DRUGS (8)
  1. PERJETA [Suspect]
     Active Substance: PERTUZUMAB
     Indication: HER-2 POSITIVE BREAST CANCER
     Dosage: CYCLE 1
     Route: 042
     Dates: start: 201602, end: 20160920
  2. TAXOL [Concomitant]
     Active Substance: PACLITAXEL
     Dosage: CYCLE 2
     Route: 065
  3. HERCEPTIN [Suspect]
     Active Substance: TRASTUZUMAB
     Dosage: CYCLE 2
     Route: 042
  4. HERCEPTIN [Suspect]
     Active Substance: TRASTUZUMAB
     Route: 042
  5. PERJETA [Suspect]
     Active Substance: PERTUZUMAB
     Dosage: CYCLE 2
     Route: 042
  6. PERJETA [Suspect]
     Active Substance: PERTUZUMAB
     Route: 042
  7. HERCEPTIN [Suspect]
     Active Substance: TRASTUZUMAB
     Indication: HER-2 POSITIVE BREAST CANCER
     Dosage: CYCLE 1
     Route: 042
     Dates: start: 201602
  8. TAXOTERE [Concomitant]
     Active Substance: DOCETAXEL
     Dosage: CYCLE 1
     Route: 065

REACTIONS (4)
  - Xerosis [Not Recovered/Not Resolved]
  - Mucosal inflammation [Not Recovered/Not Resolved]
  - Nail toxicity [Not Recovered/Not Resolved]
  - Diarrhoea [Not Recovered/Not Resolved]

NARRATIVE: CASE EVENT DATE: 201609
